FAERS Safety Report 24052889 (Version 1)
Quarter: 2024Q3

REPORT INFORMATION
  Report Type: Spontaneous
  Country: US (occurrence: US)
  Receive Date: 20240705
  Receipt Date: 20240705
  Transmission Date: 20241017
  Serious: Yes (Life-Threatening, Hospitalization)
  Sender: LUPIN
  Company Number: US-LUPIN PHARMACEUTICALS INC.-2024-05717

PATIENT
  Age: 75 Year
  Sex: Female

DRUGS (1)
  1. PHENYTOIN SODIUM [Suspect]
     Active Substance: PHENYTOIN SODIUM
     Indication: Epilepsy
     Dosage: UNK
     Route: 065

REACTIONS (2)
  - Bradyarrhythmia [Recovered/Resolved]
  - Hypotension [Unknown]
